FAERS Safety Report 8836088 (Version 1)
Quarter: 2012Q4

REPORT INFORMATION
  Report Type: 
  Country: MX (occurrence: MX)
  Receive Date: 20121011
  Receipt Date: 20121011
  Transmission Date: 20130627
  Serious: Yes (Death)
  Sender: FDA-Public Use
  Company Number: PHHY2012MX090093

PATIENT
  Sex: Male

DRUGS (4)
  1. RASILEZ [Suspect]
     Indication: HYPERTENSION
     Dosage: 1 tablet daily
     Dates: start: 201107
  2. ISCOVER [Concomitant]
     Dosage: 1 tablet per day
  3. VYTORIN [Concomitant]
     Dosage: 0.5 tablet per day
     Dates: start: 2011
  4. REFORMON [Concomitant]
     Dosage: UNK
     Dates: start: 2012

REACTIONS (1)
  - Death [Fatal]
